FAERS Safety Report 8433885-2 (Version None)
Quarter: 2012Q2

REPORT INFORMATION
  Report Type: 
  Country: None (occurrence: None)
  Receive Date: 20120323
  Receipt Date: 20110718
  Transmission Date: 20120825
  Serious: Yes (Hospitalization)
  Sender: FDA-Public Use
  Company Number: 163-21880-11072016

PATIENT
  Age: 90 Year
  Sex: Male
  Weight: 79.3795 kg

DRUGS (16)
  1. CITRICAL (CALCIUM CITRATE) [Concomitant]
  2. IRON (IRON) [Concomitant]
  3. ALTACE [Concomitant]
  4. ARANESP [Concomitant]
  5. KIONEX (SODIUM POLYSTYRENE SULFONATE) [Concomitant]
  6. HUMALOG [Concomitant]
  7. NEUPOGEN [Concomitant]
  8. PROCRIT [Concomitant]
  9. REVLIMID [Suspect]
     Indication: MULTIPLE MYELOMA
     Dosage: 10 MG, X21 DAYS, PO, 10 MG, PO
     Route: 048
     Dates: start: 20110526, end: 20110701
  10. REVLIMID [Suspect]
     Indication: MYELODYSPLASTIC SYNDROME
     Dosage: 10 MG, X21 DAYS, PO, 10 MG, PO
     Route: 048
     Dates: start: 20110526, end: 20110701
  11. REVLIMID [Suspect]
     Indication: MULTIPLE MYELOMA
     Dosage: 10 MG, X21 DAYS, PO, 10 MG, PO
     Route: 048
     Dates: start: 20110701
  12. REVLIMID [Suspect]
     Indication: MYELODYSPLASTIC SYNDROME
     Dosage: 10 MG, X21 DAYS, PO, 10 MG, PO
     Route: 048
     Dates: start: 20110701
  13. LANTUS [Concomitant]
  14. VICODIN [Concomitant]
  15. TESTOSTERONE [Concomitant]
  16. VIAGRA [Concomitant]

REACTIONS (3)
  - FULL BLOOD COUNT DECREASED [None]
  - STAPHYLOCOCCAL SEPSIS [None]
  - THROMBOCYTOPENIC PURPURA [None]
